FAERS Safety Report 12936533 (Version 5)
Quarter: 2018Q1

REPORT INFORMATION
  Report Type: Spontaneous
  Country: PT (occurrence: PT)
  Receive Date: 20161114
  Receipt Date: 20180309
  Transmission Date: 20180508
  Serious: Yes (Death, Disabling, Other)
  Sender: FDA-Public Use
  Company Number: PT-009507513-1608PRT010782

PATIENT
  Age: 58 Year
  Sex: Female

DRUGS (1)
  1. KEYTRUDA [Suspect]
     Active Substance: PEMBROLIZUMAB
     Indication: METASTATIC MALIGNANT MELANOMA
     Dosage: 2MG/KG EVERY 3 WEEKS

REACTIONS (8)
  - Asthenia [Fatal]
  - General physical health deterioration [Fatal]
  - Demyelination [Unknown]
  - Neurological symptom [Fatal]
  - Paraesthesia [Fatal]
  - Neuropathy peripheral [Fatal]
  - Gait disturbance [Fatal]
  - Multiple sclerosis [Fatal]
